FAERS Safety Report 12646359 (Version 2)
Quarter: 2016Q3

REPORT INFORMATION
  Report Type: Spontaneous
  Country: FR (occurrence: FR)
  Receive Date: 20160812
  Receipt Date: 20160825
  Transmission Date: 20161109
  Serious: Yes (Hospitalization)
  Sender: FDA-Public Use
  Company Number: FR-009507513-1608FRA001926

PATIENT
  Age: 51 Year
  Sex: Male
  Weight: 96.5 kg

DRUGS (1)
  1. TEMODAL [Suspect]
     Active Substance: TEMOZOLOMIDE
     Indication: GLIOBLASTOMA
     Dosage: TOTAL DOSE RECEIVED 3450 MG IN 6 DAYS
     Route: 048
     Dates: start: 20160728, end: 20160802

REACTIONS (3)
  - Thrombocytopenia [Unknown]
  - Overdose [Unknown]
  - Product use issue [Unknown]

NARRATIVE: CASE EVENT DATE: 20160728
